FAERS Safety Report 7212413-3 (Version None)
Quarter: 2010Q4

REPORT INFORMATION
  Report Type: 
  Country: None (occurrence: None)
  Receive Date: 20101229
  Receipt Date: 20101229
  Transmission Date: 20110411
  Serious: Yes (Hospitalization)
  Sender: FDA-Public Use
  Company Number: OU-10-043-3

PATIENT
  Age: 76 Year
  Sex: Male

DRUGS (1)
  1. CEFTRIAXONE [Suspect]
     Indication: SEPSIS
     Dosage: 2 G PER DAY; UNK

REACTIONS (2)
  - CHOREOATHETOSIS [None]
  - LOSS OF CONSCIOUSNESS [None]
